FAERS Safety Report 5424955-1 (Version None)
Quarter: 2007Q3

REPORT INFORMATION
  Report Type: 
  Country: None (occurrence: None)
  Receive Date: 20070824
  Receipt Date: 20070821
  Transmission Date: 20080115
  Serious: Yes (Other)
  Sender: FDA-Public Use
  Company Number: A0673514A

PATIENT
  Age: 43 Year
  Sex: Male

DRUGS (9)
  1. LAMICTAL [Suspect]
     Indication: DRUG USE FOR UNKNOWN INDICATION
     Dosage: 125MG TWICE PER DAY
     Route: 048
     Dates: start: 20060914, end: 20070418
  2. RISPERDAL [Concomitant]
  3. CELEXA [Concomitant]
  4. BUPROPION HCL [Concomitant]
  5. CLONAZEPAM [Concomitant]
  6. ASPIRIN [Concomitant]
  7. HYTRIN [Concomitant]
  8. LOPID [Concomitant]
  9. LOVASTAN [Concomitant]

REACTIONS (3)
  - ASTHMA [None]
  - BRONCHIAL HYPERREACTIVITY [None]
  - DYSPNOEA [None]
